FAERS Safety Report 4791984-0 (Version None)
Quarter: 2005Q4

REPORT INFORMATION
  Report Type: 
  Country: None (occurrence: None)
  Receive Date: 20051007
  Receipt Date: 20050928
  Transmission Date: 20060501
  Serious: Yes (Hospitalization)
  Sender: FDA-Public Use
  Company Number: DE-ABBOTT-05P-062-0312463-00

PATIENT
  Sex: Male
  Weight: 80 kg

DRUGS (5)
  1. HUMIRA 40 MG/ 0.8 ML PRE-FILLED SYRINGE [Suspect]
     Indication: RHEUMATOID ARTHRITIS
     Route: 058
     Dates: start: 20050401
  2. METHOTREXATE SODIUM [Concomitant]
     Indication: RHEUMATOID ARTHRITIS
  3. GLUCOCORTICOIDS [Concomitant]
     Indication: RHEUMATOID ARTHRITIS
     Route: 048
     Dates: end: 20050926
  4. GLUCOCORTICOIDS [Concomitant]
     Route: 048
     Dates: start: 20050926
  5. NSAR [Concomitant]
     Indication: RHEUMATOID ARTHRITIS

REACTIONS (1)
  - ISCHAEMIC STROKE [None]
